FAERS Safety Report 16836773 (Version 7)
Quarter: 2021Q1

REPORT INFORMATION
  Report Type: Spontaneous
  Country: US (occurrence: US)
  Receive Date: 20190922
  Receipt Date: 20210317
  Transmission Date: 20210419
  Serious: Yes (Life-Threatening, Other)
  Sender: FDA-Public Use
  Company Number: US-SHIRE-US201930955

PATIENT
  Age: 58 Year
  Sex: Female

DRUGS (14)
  1. NATPARA (PARATHYROID HORMONE) [Suspect]
     Active Substance: PARATHYROID HORMONE
     Indication: RENAL DISORDER
     Dosage: 75 MICROGRAM, 1X/DAY:QD
     Route: 058
     Dates: start: 20150928
  2. VITAMIN D3 [Concomitant]
     Active Substance: CHOLECALCIFEROL
     Dosage: 1500 INTERNATIONAL UNIT, QD
     Route: 065
  3. LEVOTHYROXINE SODIUM. [Concomitant]
     Active Substance: LEVOTHYROXINE SODIUM
     Dosage: 175 MICROGRAM, QD
     Route: 048
  4. NATPARA (PARATHYROID HORMONE) [Suspect]
     Active Substance: PARATHYROID HORMONE
     Indication: HYPOPARATHYROIDISM
     Dosage: 25 MICROGRAM, QD
     Route: 058
     Dates: start: 20210305
  5. VITAMIN D2 [Concomitant]
     Active Substance: ERGOCALCIFEROL
     Dosage: 50000 INTERNATIONAL UNIT, 1/WEEK
     Route: 065
  6. NATPARA (PARATHYROID HORMONE) [Suspect]
     Active Substance: PARATHYROID HORMONE
     Indication: HYPOPARATHYROIDISM
     Dosage: 25 MICROGRAM, QD
     Route: 058
     Dates: start: 20210305
  7. VIT D [Concomitant]
     Active Substance: VITAMIN D NOS
     Indication: PRODUCT USED FOR UNKNOWN INDICATION
     Dosage: 1 DOSAGE FORM, 1/WEEK
     Route: 048
  8. CALCIUM CITRATE + D3 [Concomitant]
     Dosage: 30 MILLILITER, BID
     Route: 048
  9. ROCALTROL [Concomitant]
     Active Substance: CALCITRIOL
     Dosage: 1 MICROGRAM, QD
     Route: 065
  10. NATPARA (PARATHYROID HORMONE) [Suspect]
     Active Substance: PARATHYROID HORMONE
     Indication: RENAL DISORDER
     Dosage: 75 MICROGRAM, 1X/DAY:QD
     Route: 058
     Dates: start: 20150928
  11. INSULIN [Concomitant]
     Active Substance: INSULIN NOS
     Dosage: 1 DOSAGE FORM, QD
     Route: 065
  12. NATPARA (PARATHYROID HORMONE) [Suspect]
     Active Substance: PARATHYROID HORMONE
     Indication: RENAL DISORDER
     Dosage: 75 MICROGRAM, 1X/DAY:QD
     Route: 058
     Dates: start: 20150928
  13. NATPARA (PARATHYROID HORMONE) [Suspect]
     Active Substance: PARATHYROID HORMONE
     Indication: HYPOPARATHYROIDISM
     Dosage: 25 MICROGRAM, QD
     Route: 058
     Dates: start: 20210305
  14. CALCITRIOL. [Concomitant]
     Active Substance: CALCITRIOL
     Indication: PRODUCT USED FOR UNKNOWN INDICATION
     Dosage: 0.5 MICROGRAM, BID
     Route: 048

REACTIONS (6)
  - Off label use [Recovered/Resolved]
  - Tetany [Unknown]
  - Therapeutic response unexpected [Unknown]
  - Hypercalcaemia [Unknown]
  - Recalled product [Unknown]
  - Renal failure [Unknown]

NARRATIVE: CASE EVENT DATE: 20210218
